FAERS Safety Report 17476659 (Version 1)
Quarter: 2020Q1

REPORT INFORMATION
  Report Type: Report from Study
  Country: US (occurrence: US)
  Receive Date: 20200228
  Receipt Date: 20200228
  Transmission Date: 20200409
  Serious: Yes (Other)
  Sender: FDA-Public Use
  Company Number: US-ROCHE-2558302

PATIENT
  Sex: Female

DRUGS (5)
  1. ACTEMRA [Suspect]
     Active Substance: TOCILIZUMAB
     Indication: ESSENTIAL HYPERTENSION
  2. ACTEMRA [Suspect]
     Active Substance: TOCILIZUMAB
     Indication: DIABETES MELLITUS
  3. ACTEMRA [Suspect]
     Active Substance: TOCILIZUMAB
     Indication: CUTANEOUS LUPUS ERYTHEMATOSUS
  4. ACTEMRA [Suspect]
     Active Substance: TOCILIZUMAB
     Indication: CHRONIC KIDNEY DISEASE
  5. ACTEMRA [Suspect]
     Active Substance: TOCILIZUMAB
     Indication: RHEUMATOID ARTHRITIS
     Route: 058

REACTIONS (1)
  - Perineal injury [Unknown]
